FAERS Safety Report 8433341-1 (Version None)
Quarter: 2012Q2

REPORT INFORMATION
  Report Type: 
  Country: None (occurrence: None)
  Receive Date: 20120613
  Receipt Date: 20120606
  Transmission Date: 20120825
  Serious: Yes (Hospitalization)
  Sender: FDA-Public Use
  Company Number: JP-PFIZER INC-2012137097

PATIENT
  Age: 88 Year
  Sex: Female

DRUGS (7)
  1. DIART [Concomitant]
     Dosage: 30 MG, 1X/DAY
     Route: 048
  2. ZOSYN [Suspect]
     Indication: URINARY TRACT INFECTION
  3. LACB R [Concomitant]
     Dosage: 3 G/DAY
     Route: 048
  4. ZOSYN [Suspect]
     Indication: PNEUMONIA
     Dosage: 4.5 MG, 2X/DAY
     Dates: start: 20120403, end: 20120417
  5. FAMOTIDINE [Concomitant]
     Dosage: 20 MG, 1X/DAY
  6. NICORANDIL [Concomitant]
     Dosage: 15 MG/DAY
     Route: 048
  7. EQUA [Concomitant]
     Dosage: 100 MG/DAY
     Route: 048

REACTIONS (1)
  - HEPATIC FUNCTION ABNORMAL [None]
